FAERS Safety Report 16002478 (Version 2)
Quarter: 2019Q1

REPORT INFORMATION
  Report Type: Spontaneous
  Country: US (occurrence: US)
  Receive Date: 20190225
  Receipt Date: 20190225
  Transmission Date: 20190418
  Serious: No
  Sender: FDA-Public Use
  Company Number: US-TEVA-2019-US-1007257

PATIENT
  Age: 56 Year
  Sex: Female
  Weight: 112.59 kg

DRUGS (4)
  1. BIOTIN VITAMIN [Concomitant]
     Indication: SUPPLEMENTATION THERAPY
  2. GABAPENTIN. [Concomitant]
     Active Substance: GABAPENTIN
     Indication: NEURALGIA
     Dosage: 100 MILLIGRAM DAILY;
  3. FOLIC ACID. [Concomitant]
     Active Substance: FOLIC ACID
  4. LETROZOLE TEVA [Suspect]
     Active Substance: LETROZOLE
     Indication: BREAST CANCER
     Dosage: 2.5 MILLIGRAM DAILY;
     Route: 048
     Dates: start: 20170803

REACTIONS (5)
  - Headache [Not Recovered/Not Resolved]
  - Diarrhoea [Unknown]
  - Constipation [Unknown]
  - Joint injury [Unknown]
  - Dizziness [Not Recovered/Not Resolved]

NARRATIVE: CASE EVENT DATE: 201708
